FAERS Safety Report 9720118 (Version 2)
Quarter: 2014Q1

REPORT INFORMATION
  Report Type: Spontaneous
  Country: IT (occurrence: IT)
  Receive Date: 20131128
  Receipt Date: 20140107
  Transmission Date: 20141002
  Serious: Yes (Other)
  Sender: FDA-Public Use
  Company Number: IT-BRISTOL-MYERS SQUIBB COMPANY-19839406

PATIENT
  Age: 66 Year
  Sex: Male

DRUGS (2)
  1. BYETTA [Suspect]
     Indication: DIABETES MELLITUS
  2. METFORMIN [Suspect]
     Indication: DIABETES MELLITUS

REACTIONS (2)
  - Pancreatic neoplasm [Unknown]
  - Nausea [Unknown]
